FAERS Safety Report 4389323-2 (Version None)
Quarter: 2004Q3

REPORT INFORMATION
  Report Type: 
  Country: None (occurrence: None)
  Receive Date: 20040702
  Receipt Date: 20040623
  Transmission Date: 20050211
  Serious: Yes (Other)
  Sender: FDA-Public Use
  Company Number: JP-ROCHE-371864

PATIENT
  Age: 72 Year
  Sex: Male
  Weight: 60 kg

DRUGS (6)
  1. PEG-INTERFERON A-2A (RO 25-8310) [Suspect]
     Indication: HEPATIC CIRRHOSIS
     Route: 058
     Dates: start: 20040213, end: 20040220
  2. PEG-INTERFERON A-2A (RO 25-8310) [Suspect]
     Route: 058
     Dates: start: 20040227, end: 20040227
  3. PEG-INTERFERON A-2A (RO 25-8310) [Suspect]
     Route: 058
     Dates: start: 20040305
  4. RITALIN [Concomitant]
     Route: 048
     Dates: start: 20030414
  5. ZANTAC [Concomitant]
     Route: 048
     Dates: start: 20040310
  6. AMARYL [Concomitant]
     Route: 048
     Dates: start: 20040422

REACTIONS (2)
  - PURPURA [None]
  - TRANSAMINASES DECREASED [None]
